FAERS Safety Report 4437973-7 (Version None)
Quarter: 2004Q3

REPORT INFORMATION
  Report Type: 
  Country: None (occurrence: None)
  Receive Date: 20040831
  Receipt Date: 20040820
  Transmission Date: 20050211
  Serious: Yes (Hospitalization)
  Sender: FDA-Public Use
  Company Number: JP-ROCHE-378089

PATIENT
  Age: 84 Year
  Sex: Male

DRUGS (1)
  1. PERDIPINE [Suspect]
     Indication: DRUG USE FOR UNKNOWN INDICATION
     Route: 048
     Dates: start: 20020615, end: 20040806

REACTIONS (3)
  - PULMONARY ALVEOLAR HAEMORRHAGE [None]
  - PURPURA [None]
  - VASCULITIS [None]
